FAERS Safety Report 4333936-0 (Version None)
Quarter: 2004Q2

REPORT INFORMATION
  Report Type: 
  Country: None (occurrence: None)
  Receive Date: 20040402
  Receipt Date: 20040322
  Transmission Date: 20050107
  Serious: Yes (Hospitalization, Other)
  Sender: FDA-Public Use
  Company Number: US-JNJFOC-20040305510

PATIENT
  Age: 61 Year
  Sex: Male
  Weight: 59.8748 kg

DRUGS (3)
  1. DURAGESIC [Suspect]
     Indication: PAIN
     Dosage: 75 UG/HR, TRANSDERMAL
     Route: 062
     Dates: start: 20040201, end: 20040201
  2. TYLENOL NO. 3 (ACETAMINOPHEN/CODEINE) TABLETS [Suspect]
     Indication: PAIN
     Dosage: 300 MG/30 MG - - ONE TABLET, AS NEEDED
     Dates: start: 20040201
  3. PLAVIX [Concomitant]

REACTIONS (2)
  - PULSE ABSENT [None]
  - RASH [None]
